FAERS Safety Report 10583291 (Version 1)
Quarter: 2014Q4

REPORT INFORMATION
  Report Type: Spontaneous
  Country: US (occurrence: None)
  Receive Date: 20141112
  Receipt Date: 20141112
  Transmission Date: 20150529
  Serious: Yes (Hospitalization, Other)
  Sender: FDA-Public Use
  Company Number: LH201400377

PATIENT
  Sex: Male

DRUGS (1)
  1. MAKENA [Suspect]
     Active Substance: HYDROXYPROGESTERONE CAPROATE
     Indication: EXPOSURE DURING PREGNANCY
     Dates: start: 20140729, end: 20141021

REACTIONS (5)
  - Maternal drugs affecting foetus [None]
  - Gastrointestinal surgery [None]
  - Congenital anomaly [None]
  - Respiratory disorder neonatal [None]
  - Premature baby [None]

NARRATIVE: CASE EVENT DATE: 201410
